FAERS Safety Report 20252680 (Version 1)
Quarter: 2021Q4

REPORT INFORMATION
  Report Type: Spontaneous
  Country: US (occurrence: US)
  Receive Date: 20211229
  Receipt Date: 20211229
  Transmission Date: 20220303
  Serious: Yes (Other)
  Sender: FDA-Public Use
  Company Number: US-PURDUE-USA-2020-0225312

PATIENT
  Sex: Male

DRUGS (9)
  1. OXYCONTIN [Suspect]
     Active Substance: OXYCODONE HYDROCHLORIDE
     Indication: Hernia
     Dosage: UNKNOWN
     Route: 048
  2. DILAUDID [Suspect]
     Active Substance: HYDROMORPHONE HYDROCHLORIDE
     Indication: Hernia
     Dosage: UNKNOWN
     Route: 048
  3. MS CONTIN [Suspect]
     Active Substance: MORPHINE SULFATE
     Indication: Hernia
     Dosage: UNKNOWN
     Route: 048
  4. OXYCODONE HYDROCHLORIDE [Suspect]
     Active Substance: OXYCODONE HYDROCHLORIDE
     Indication: Hernia
     Dosage: UNKNOWN
     Route: 048
  5. OXYCODONE HYDROCHLORIDE [Suspect]
     Active Substance: OXYCODONE HYDROCHLORIDE
     Indication: Hernia
     Dosage: UNKNOWN
     Route: 048
  6. ACETAMINOPHEN\OXYCODONE HYDROCHLORIDE [Suspect]
     Active Substance: ACETAMINOPHEN\OXYCODONE HYDROCHLORIDE
     Indication: Hernia
     Dosage: UNKNOWN
     Route: 048
  7. HYDROCODONE BITARTRATE AND ACETAMINOPHEN [Suspect]
     Active Substance: ACETAMINOPHEN\HYDROCODONE BITARTRATE
     Indication: Hernia
     Dosage: UNKNOWN
     Route: 048
  8. OXYCODONE [Suspect]
     Active Substance: OXYCODONE
     Indication: Hernia
     Dosage: UNKNOWN
     Route: 065
  9. HEROIN [Suspect]
     Active Substance: DIAMORPHINE
     Indication: Hernia
     Dosage: UNKNOWN
     Route: 065

REACTIONS (6)
  - Overdose [Unknown]
  - Drug dependence [Unknown]
  - Drug withdrawal syndrome [Unknown]
  - Malaise [Unknown]
  - Mental disorder [Unknown]
  - Emotional distress [Unknown]
